FAERS Safety Report 5517726-9 (Version None)
Quarter: 2007Q4

REPORT INFORMATION
  Report Type: 
  Country: None (occurrence: None)
  Receive Date: 20071113
  Receipt Date: 20071101
  Transmission Date: 20080405
  Serious: Yes (Other)
  Sender: FDA-Public Use
  Company Number: 2007334412

PATIENT
  Age: 7 Year
  Sex: Female
  Weight: 19.0511 kg

DRUGS (1)
  1. LISTERINE AGENT COOL BLUE BUBBLE BLAST (NO ACTIVE INGREDIENT) [Suspect]
     Dosage: CAPFUL, ONCE A DAY (1 IN 1 D), ORAL
     Route: 048
     Dates: start: 20070401, end: 20071030

REACTIONS (3)
  - ORAL PUSTULE [None]
  - OROPHARYNGEAL CANDIDIASIS [None]
  - PYREXIA [None]
